FAERS Safety Report 17097100 (Version 3)
Quarter: 2020Q3

REPORT INFORMATION
  Report Type: Report from Study
  Country: PL (occurrence: PL)
  Receive Date: 20191202
  Receipt Date: 20200710
  Transmission Date: 20201102
  Serious: Yes (Hospitalization)
  Sender: FDA-Public Use
  Company Number: PL-ROCHE-2482467

PATIENT
  Age: 65 Year
  Sex: Female
  Weight: 87 kg

DRUGS (16)
  1. ATEZOLIZUMAB. [Suspect]
     Active Substance: ATEZOLIZUMAB
     Indication: NON-SMALL CELL LUNG CANCER
     Dosage: DATE OF MOST RECENT DOSE OF ATEZOLIZUMAB PRIOR TO BOTH THE EPISODES OF PSORIASIS: 20/AUG/2019
     Route: 042
     Dates: start: 20181016
  2. GLIBETIC [GLIMEPIRIDE] [Concomitant]
     Active Substance: GLIMEPIRIDE
     Indication: DIABETES MELLITUS
     Route: 065
     Dates: start: 201708
  3. CISPLATIN. [Suspect]
     Active Substance: CISPLATIN
     Indication: NON-SMALL CELL LUNG CANCER
     Route: 042
     Dates: start: 20180625
  4. VINORELBINE [Suspect]
     Active Substance: VINORELBINE TARTRATE
     Indication: NON-SMALL CELL LUNG CANCER
     Route: 042
     Dates: start: 20180625
  5. AGAPURIN [Concomitant]
     Indication: POLYNEUROPATHY
     Route: 065
     Dates: start: 20181211
  6. FUROSEMIDE. [Concomitant]
     Active Substance: FUROSEMIDE
     Indication: OEDEMA PERIPHERAL
     Route: 065
     Dates: start: 20190801
  7. TRAVOGEN [Concomitant]
     Active Substance: ISOCONAZOLE NITRATE
     Indication: RASH
     Route: 065
     Dates: start: 20190806, end: 20190820
  8. COAXIL [Concomitant]
     Active Substance: TIANEPTINE SODIUM
     Route: 065
     Dates: start: 201903
  9. NEUROVIT [CYANOCOBALAMIN;PYRIDOXINE HYDROCHLORIDE;THIAMINE HYDROCHLORI [Concomitant]
     Indication: POLYNEUROPATHY
     Route: 065
     Dates: start: 201902
  10. NEUROLIPON [Concomitant]
     Indication: POLYNEUROPATHY
     Route: 065
     Dates: start: 20190216
  11. TORSEMED [Concomitant]
     Active Substance: TORSEMIDE
     Indication: OEDEMA PERIPHERAL
     Route: 065
     Dates: start: 20190718, end: 20190730
  12. BISOCARD [Concomitant]
     Active Substance: BISOPROLOL
     Indication: HYPERTENSION
     Route: 065
     Dates: start: 2015
  13. HALIDOR [Concomitant]
     Indication: ARTERIOSCLEROSIS
     Route: 065
     Dates: start: 201902
  14. BEDICORT G [Concomitant]
     Indication: RASH
     Route: 065
     Dates: start: 20190806
  15. FLUCONAZOLE. [Concomitant]
     Active Substance: FLUCONAZOLE
     Indication: RASH
     Route: 065
     Dates: start: 20190723, end: 20190805
  16. KALIPOZ [Concomitant]
     Active Substance: POTASSIUM CHLORIDE
     Indication: PROPHYLAXIS
     Route: 065
     Dates: start: 20190730

REACTIONS (1)
  - Psoriasis [Recovered/Resolved]

NARRATIVE: CASE EVENT DATE: 20190712
